FAERS Safety Report 9739522 (Version 1)
Quarter: 2013Q4

REPORT INFORMATION
  Report Type: Spontaneous
  Country: ES (occurrence: ES)
  Receive Date: 20131209
  Receipt Date: 20131209
  Transmission Date: 20140711
  Serious: Yes (Other)
  Sender: FDA-Public Use
  Company Number: ES-ACCORD-020584

PATIENT
  Age: 48 Year
  Sex: Male

DRUGS (1)
  1. TACROLIMUS [Suspect]
     Indication: PRODUCT USED FOR UNKNOWN INDICATION
     Dosage: 6MG/DAY WITH SUBSEQUENT REDUCTION TO 4-5MG/DAY WITH LEVELS {8NG/ML

REACTIONS (1)
  - Gynaecomastia [Recovered/Resolved]
